FAERS Safety Report 4424761-0 (Version None)
Quarter: 2004Q3

REPORT INFORMATION
  Report Type: 
  Country: None (occurrence: None)
  Receive Date: 20040805
  Receipt Date: 20040726
  Transmission Date: 20050211
  Serious: Yes (Hospitalization)
  Sender: FDA-Public Use
  Company Number: TCI2004A02443

PATIENT
  Age: 58 Year
  Sex: Female

DRUGS (9)
  1. ACTOS [Suspect]
     Indication: DIABETES MELLITUS
     Dosage: SEE IMAGE
     Route: 048
     Dates: start: 20000101, end: 20030301
  2. ACTOS [Suspect]
     Indication: DIABETES MELLITUS
     Dosage: SEE IMAGE
     Route: 048
     Dates: start: 20030801, end: 20040510
  3. ACTOS [Suspect]
     Indication: DIABETES MELLITUS
     Dosage: SEE IMAGE
     Route: 048
     Dates: start: 20040511, end: 20040614
  4. METFORMIN HCL [Concomitant]
  5. NORVASC [Concomitant]
  6. PENFIL 30R                      (INSULIN HUMAN) [Concomitant]
  7. DOXAZOSIN MESYLATE [Concomitant]
  8. PRAVASTATIN SODIUM [Concomitant]
  9. LOSARTAN POTASSIUM [Concomitant]

REACTIONS (7)
  - BLOOD GLUCOSE ABNORMAL [None]
  - CHOLESTASIS [None]
  - GLYCOSYLATED HAEMOGLOBIN INCREASED [None]
  - HEPATIC FUNCTION ABNORMAL [None]
  - METASTASES TO LIVER [None]
  - OEDEMA [None]
  - PANCREATIC CARCINOMA [None]
